FAERS Safety Report 9988055 (Version 2)
Quarter: 2015Q4

REPORT INFORMATION
  Report Type: Report from Study
  Country: US (occurrence: US)
  Receive Date: 20140308
  Receipt Date: 20151104
  Transmission Date: 20160305
  Serious: Yes (Other)
  Sender: FDA-Public Use
  Company Number: US-ROCHE-1332216

PATIENT
  Age: 84 Year
  Sex: Female

DRUGS (11)
  1. LUCENTIS [Suspect]
     Active Substance: RANIBIZUMAB
     Indication: NEOVASCULAR AGE-RELATED MACULAR DEGENERATION
     Dosage: OD?(FORM STRENGTH: 10 MG/ML)
     Route: 050
     Dates: start: 20110713
  2. PROPARACAINE [Concomitant]
     Active Substance: PROPARACAINE
     Indication: ANAESTHESIA
     Route: 061
  3. LIDOCAINE. [Concomitant]
     Active Substance: LIDOCAINE
     Route: 065
  4. LUCENTIS [Suspect]
     Active Substance: RANIBIZUMAB
     Dosage: OD
     Route: 050
     Dates: start: 20120711
  5. PHENYLEPHRINE [Concomitant]
     Active Substance: PHENYLEPHRINE\PHENYLEPHRINE HYDROCHLORIDE
     Route: 065
  6. VIGAMOX [Concomitant]
     Active Substance: MOXIFLOXACIN HYDROCHLORIDE
     Dosage: OU X 1 WEEK POST LUCENTIS INJECTION
     Route: 065
     Dates: start: 20110302
  7. TRAVATAN Z [Concomitant]
     Active Substance: TRAVOPROST
     Indication: GLAUCOMA
     Dosage: OU AT HS
     Route: 065
     Dates: start: 20110606
  8. LUCENTIS [Suspect]
     Active Substance: RANIBIZUMAB
     Dosage: OD
     Route: 050
     Dates: start: 20130605
  9. EPINEPHRINE HCL [Concomitant]
     Active Substance: EPINEPHRINE
  10. TROPICAMIDE. [Concomitant]
     Active Substance: TROPICAMIDE
     Route: 065
  11. CIPRO [Concomitant]
     Active Substance: CIPROFLOXACIN HYDROCHLORIDE
     Dosage: OD X2/X3 AS REQUIRED
     Route: 065
     Dates: start: 20111005

REACTIONS (14)
  - Disease progression [Unknown]
  - Asthenopia [Unknown]
  - Cataract [Unknown]
  - Subretinal fibrosis [Unknown]
  - Cutis laxa [Unknown]
  - Vitreous detachment [Unknown]
  - Macular degeneration [Unknown]
  - Detachment of retinal pigment epithelium [Unknown]
  - Eye irritation [Unknown]
  - Retinal disorder [Unknown]
  - Glaucoma [Unknown]
  - Retinal oedema [Unknown]
  - Visual acuity reduced [Unknown]
  - Choroidal neovascularisation [Unknown]

NARRATIVE: CASE EVENT DATE: 20110713
